FAERS Safety Report 7537782-6 (Version None)
Quarter: 2011Q2

REPORT INFORMATION
  Report Type: 
  Country: None (occurrence: None)
  Receive Date: 20110609
  Receipt Date: 20110602
  Transmission Date: 20111010
  Serious: Yes (Other)
  Sender: FDA-Public Use
  Company Number: US-PURDUE-USA-2011-0068342

PATIENT
  Sex: Male

DRUGS (1)
  1. OXYCONTIN [Suspect]
     Indication: PAIN
     Dosage: 80 MG, QID
     Route: 048
     Dates: start: 20110401

REACTIONS (8)
  - PAIN [None]
  - COCCIDIOIDOMYCOSIS [None]
  - INADEQUATE ANALGESIA [None]
  - HEADACHE [None]
  - DRUG INEFFECTIVE [None]
  - ASTHMA [None]
  - NAUSEA [None]
  - DIZZINESS [None]
